FAERS Safety Report 24358717 (Version 5)
Quarter: 2025Q1

REPORT INFORMATION
  Report Type: Spontaneous
  Country: US (occurrence: US)
  Receive Date: 20240924
  Receipt Date: 20250128
  Transmission Date: 20250409
  Serious: No
  Sender: PFIZER
  Company Number: US-PFIZER INC-PV202400123795

PATIENT
  Age: 51 Year
  Sex: Female

DRUGS (2)
  1. IBRANCE [Suspect]
     Active Substance: PALBOCICLIB
  2. LETROZOLE [Concomitant]
     Active Substance: LETROZOLE
     Dates: end: 202501

REACTIONS (16)
  - Fatigue [Not Recovered/Not Resolved]
  - Dysgeusia [Unknown]
  - Dizziness [Not Recovered/Not Resolved]
  - Irritability [Unknown]
  - White blood cell count decreased [Not Recovered/Not Resolved]
  - Onychoclasis [Unknown]
  - Onychomadesis [Unknown]
  - Nausea [Not Recovered/Not Resolved]
  - Vomiting [Not Recovered/Not Resolved]
  - Pain [Unknown]
  - Red blood cell count increased [Unknown]
  - Fibromyalgia [Unknown]
  - Arthralgia [Not Recovered/Not Resolved]
  - Gastrointestinal disorder [Unknown]
  - Oral pain [Not Recovered/Not Resolved]
  - Product dose omission issue [Unknown]

NARRATIVE: CASE EVENT DATE: 20250101
